FAERS Safety Report 6086542-4 (Version None)
Quarter: 2009Q1

REPORT INFORMATION
  Report Type: 
  Country: None (occurrence: None)
  Receive Date: 20090223
  Receipt Date: 20090219
  Transmission Date: 20090719
  Serious: Yes (Death, Hospitalization)
  Sender: FDA-Public Use
  Company Number: US-BRISTOL-MYERS SQUIBB COMPANY-14512396

PATIENT
  Age: 67 Year
  Sex: Female
  Weight: 70 kg

DRUGS (3)
  1. COUMADIN [Suspect]
     Indication: ARTERIAL OCCLUSIVE DISEASE
     Dates: start: 20060701, end: 20081001
  2. VICODIN [Concomitant]
  3. MORPHINE [Concomitant]

REACTIONS (8)
  - ABDOMINAL DISCOMFORT [None]
  - ABDOMINAL DISTENSION [None]
  - CONTUSION [None]
  - DEATH [None]
  - DRUG TOXICITY [None]
  - HYPERTENSION [None]
  - OEDEMA PERIPHERAL [None]
  - PAIN [None]
